FAERS Safety Report 10207163 (Version 1)
Quarter: 2014Q2

REPORT INFORMATION
  Report Type: Spontaneous
  Country: US (occurrence: US)
  Receive Date: 20140530
  Receipt Date: 20140530
  Transmission Date: 20141212
  Serious: No
  Sender: FDA-Public Use
  Company Number: US-GLAXOSMITHKLINE-A1021660A

PATIENT
  Age: 69 Year
  Sex: Female

DRUGS (7)
  1. VENTOLIN [Suspect]
     Indication: CHRONIC OBSTRUCTIVE PULMONARY DISEASE
     Route: 055
  2. CARTIA [Concomitant]
  3. POTASSIUM [Concomitant]
  4. PREDNISONE [Concomitant]
  5. ASPIRIN [Concomitant]
  6. ALBUTEROL WITH NEBULIZER [Concomitant]
  7. CLARITIN [Concomitant]

REACTIONS (4)
  - Cough [Recovering/Resolving]
  - Nocturnal dyspnoea [Unknown]
  - Wheezing [Unknown]
  - Product quality issue [Unknown]
